FAERS Safety Report 25884274 (Version 1)
Quarter: 2025Q4

REPORT INFORMATION
  Report Type: Spontaneous
  Country: EU (occurrence: EU)
  Receive Date: 20251006
  Receipt Date: 20251006
  Transmission Date: 20260118
  Serious: Yes (Death, Hospitalization, Other)
  Sender: AMGEN
  Company Number: EU-AMGEN-NORSP2025195279

PATIENT
  Age: 61 Year
  Sex: Female

DRUGS (7)
  1. CARFILZOMIB [Suspect]
     Active Substance: CARFILZOMIB
     Indication: Plasma cell myeloma
     Dosage: UNK, 28-DAY CYCLE, DAY 1, 8 AND 15
     Route: 065
  2. ISATUXIMAB [Suspect]
     Active Substance: ISATUXIMAB
     Indication: Plasma cell myeloma
     Dosage: UNK, 28-DAY CYCLE, DAY 1 AND 15
     Route: 065
  3. IFOSFAMIDE [Suspect]
     Active Substance: IFOSFAMIDE
     Indication: Plasma cell myeloma
     Dosage: 1000 MILLIGRAM/SQ. METER, 28-DAY CYCLE, DAY 1-5
     Route: 065
  4. ETOPOSIDE [Suspect]
     Active Substance: ETOPOSIDE
     Indication: Plasma cell myeloma
     Dosage: 100 MILLIGRAM/SQ. METER, 28-DAY CYCLE, DAY 1-3
     Route: 065
  5. METHOTREXATE [Suspect]
     Active Substance: METHOTREXATE
     Indication: Plasma cell myeloma
     Dosage: 30 MILLIGRAM/SQ. METER, 28-DAY CYCLE, DAY 3
     Route: 065
  6. DEXAMETHASONE [Suspect]
     Active Substance: DEXAMETHASONE
     Indication: Plasma cell myeloma
     Dosage: UNK, 28-DAY CYCLE
     Route: 065
  7. MESNA [Suspect]
     Active Substance: MESNA
     Indication: Plasma cell myeloma
     Dosage: UNK, 28-DAY CYCLE
     Route: 065

REACTIONS (4)
  - Death [Fatal]
  - Pain [Not Recovered/Not Resolved]
  - Palliative care [Unknown]
  - Plasma cell myeloma [Unknown]

NARRATIVE: CASE EVENT DATE: 20240501
